FAERS Safety Report 16594396 (Version 1)
Quarter: 2019Q3

REPORT INFORMATION
  Report Type: Other
  Country: US (occurrence: US)
  Receive Date: 20190718
  Receipt Date: 20190718
  Transmission Date: 20191004
  Serious: No
  Sender: FDA-Public Use
  Company Number: US-SWEDISH ORPHAN BIOVITRUM-2019US0112

PATIENT
  Sex: Male

DRUGS (6)
  1. ALLEGRA [Concomitant]
     Active Substance: FEXOFENADINE HYDROCHLORIDE
  2. KINERET [Suspect]
     Active Substance: ANAKINRA
     Route: 058
  3. CELEBREX [Concomitant]
     Active Substance: CELECOXIB
  4. HYOSCYAMINE. [Concomitant]
     Active Substance: HYOSCYAMINE
  5. MAGNESIUM [Concomitant]
     Active Substance: MAGNESIUM
  6. PROBIOTIC [Concomitant]
     Active Substance: PROBIOTICS NOS

REACTIONS (1)
  - Urinary sediment present [Unknown]
